FAERS Safety Report 5919058-3 (Version None)
Quarter: 2008Q4

REPORT INFORMATION
  Report Type: 
  Country: None (occurrence: None)
  Receive Date: 20081014
  Receipt Date: 20081014
  Transmission Date: 20090506
  Serious: No
  Sender: FDA-Public Use
  Company Number: None

PATIENT
  Age: 59 Year
  Sex: Male
  Weight: 83 kg

DRUGS (2)
  1. LITHIUM CARBONATE [Suspect]
     Indication: BIPOLAR I DISORDER
     Dosage: 600 MG AT BEDTIME PO
     Route: 048
  2. DIVALPROEX SODIUM [Suspect]
     Dosage: 1000 MG AT BEDTIME PO
     Route: 048
     Dates: start: 20080626, end: 20080801

REACTIONS (4)
  - DIZZINESS [None]
  - FALL [None]
  - FOOT FRACTURE [None]
  - LIMB INJURY [None]
